FAERS Safety Report 19321964 (Version 5)
Quarter: 2022Q1

REPORT INFORMATION
  Report Type: Spontaneous
  Country: US (occurrence: GB)
  Receive Date: 20210528
  Receipt Date: 20220114
  Transmission Date: 20220423
  Serious: Yes (Hospitalization, Other)
  Sender: FDA-Public Use
  Company Number: GB-SA-SAC20210527000309

PATIENT
  Age: 51 Year
  Sex: Male
  Weight: 53 kg

DRUGS (90)
  1. NICOTINE [Suspect]
     Active Substance: NICOTINE
     Indication: Drug therapy
     Dosage: UNK
  2. NICOTINE [Suspect]
     Active Substance: NICOTINE
     Dosage: 21 MG, QD
  3. SODIUM CHLORIDE [Suspect]
     Active Substance: SODIUM CHLORIDE
     Indication: Medication dilution
     Dosage: 0.9 %
     Dates: start: 20200825, end: 20200825
  4. SODIUM CHLORIDE [Suspect]
     Active Substance: SODIUM CHLORIDE
     Dosage: UNK
     Dates: start: 20200825, end: 20200825
  5. SODIUM CHLORIDE [Suspect]
     Active Substance: SODIUM CHLORIDE
     Dosage: UNK
     Dates: start: 20200825, end: 20200825
  6. SODIUM CHLORIDE [Suspect]
     Active Substance: SODIUM CHLORIDE
     Dosage: 0.9 %
     Dates: start: 20200825, end: 20200825
  7. CALCIUM\VITAMIN D [Suspect]
     Active Substance: CALCIUM\VITAMIN D
     Indication: Mineral supplementation
     Dosage: UNK, QD
  8. CALCIUM\VITAMIN D [Suspect]
     Active Substance: CALCIUM\VITAMIN D
     Dosage: 8 DF, QD
  9. CALCIUM\VITAMIN D [Suspect]
     Active Substance: CALCIUM\VITAMIN D
     Dosage: 2 DF, QD
  10. CALCIUM\VITAMIN D [Suspect]
     Active Substance: CALCIUM\VITAMIN D
     Dosage: 8 DF, QD
  11. CALCIUM\VITAMIN D [Suspect]
     Active Substance: CALCIUM\VITAMIN D
     Dosage: UNK, QD
  12. CALCIUM\VITAMIN D [Suspect]
     Active Substance: CALCIUM\VITAMIN D
     Dosage: 1 DF
  13. CALCIUM [Suspect]
     Active Substance: CALCIUM
     Indication: Mineral supplementation
     Dosage: UNK
  14. CALCIUM [Suspect]
     Active Substance: CALCIUM
     Dosage: 8 DF, QD
  15. CALCIUM [Suspect]
     Active Substance: CALCIUM
     Dosage: 1 DF, QD
  16. CALCIUM [Suspect]
     Active Substance: CALCIUM
     Dosage: 1 DF, QD
  17. CALCIUM [Suspect]
     Active Substance: CALCIUM
     Dosage: 1 DF, QD
  18. CALCIUM [Suspect]
     Active Substance: CALCIUM
     Dosage: UNK, QD
  19. CALCIUM [Suspect]
     Active Substance: CALCIUM
     Dosage: UNK, QD
  20. CALCIUM [Suspect]
     Active Substance: CALCIUM
     Dosage: UNK, QD
  21. CALCIUM [Suspect]
     Active Substance: CALCIUM
     Dosage: 8 DF, QD
  22. CALCIUM [Suspect]
     Active Substance: CALCIUM
     Dosage: UNK, QD
  23. CALCIUM [Suspect]
     Active Substance: CALCIUM
     Dosage: 2 DF, QD
  24. CALCIUM [Suspect]
     Active Substance: CALCIUM
     Dosage: UNK, QD
  25. CALCIUM [Suspect]
     Active Substance: CALCIUM
     Dosage: UNK, QD
  26. CALCIUM [Suspect]
     Active Substance: CALCIUM
     Dosage: UNK, QD
  27. CALCIUM [Suspect]
     Active Substance: CALCIUM
     Dosage: 1 DF, QD
  28. THIAMINE MONONITRATE [Suspect]
     Active Substance: THIAMINE MONONITRATE
     Indication: Hypovitaminosis
     Dosage: 300 MG, QD
  29. THIAMINE MONONITRATE [Suspect]
     Active Substance: THIAMINE MONONITRATE
     Dosage: UNK
  30. DOMPERIDONE [Suspect]
     Active Substance: DOMPERIDONE
     Indication: Supportive care
     Dosage: 30 MG, PRN
     Route: 048
     Dates: start: 20200825
  31. DOMPERIDONE [Suspect]
     Active Substance: DOMPERIDONE
     Dosage: 30 MG, QD
     Route: 048
     Dates: start: 20200825
  32. DOMPERIDONE [Suspect]
     Active Substance: DOMPERIDONE
     Dosage: 8 MG, QD
     Route: 048
     Dates: start: 20200925
  33. DOMPERIDONE [Suspect]
     Active Substance: DOMPERIDONE
     Dosage: 8 MG, QD
     Route: 048
     Dates: start: 20200925
  34. ETOPOSIDE [Suspect]
     Active Substance: ETOPOSIDE
     Indication: Germ cell neoplasm
     Dosage: UNK
     Dates: start: 202007
  35. ETOPOSIDE [Suspect]
     Active Substance: ETOPOSIDE
     Dosage: UNK
     Dates: start: 202007
  36. ETOPOSIDE [Suspect]
     Active Substance: ETOPOSIDE
     Dosage: 360 MG (IN 1 LITER 2 BAGS (360 MG))
     Dates: start: 20200825, end: 20200825
  37. ETOPOSIDE [Suspect]
     Active Substance: ETOPOSIDE
     Dosage: 360 MG (IN 1 LITER 2 BAGS (360 MG))
     Dates: start: 20200825, end: 20200825
  38. ETOPOSIDE [Suspect]
     Active Substance: ETOPOSIDE
     Dosage: 360 MG
     Dates: start: 202007
  39. CALCIUM CARBONATE\CHOLECALCIFEROL [Suspect]
     Active Substance: CALCIUM CARBONATE\CHOLECALCIFEROL
     Indication: Mineral supplementation
     Dosage: 1 DF, QD
  40. CALCIUM CARBONATE\CHOLECALCIFEROL [Suspect]
     Active Substance: CALCIUM CARBONATE\CHOLECALCIFEROL
     Dosage: 2 DF, QD
  41. CALCIUM CARBONATE\CHOLECALCIFEROL [Suspect]
     Active Substance: CALCIUM CARBONATE\CHOLECALCIFEROL
     Dosage: UNK
  42. CALCIUM CARBONATE\CHOLECALCIFEROL [Suspect]
     Active Substance: CALCIUM CARBONATE\CHOLECALCIFEROL
     Dosage: 1 DF, QD
  43. CALCIUM CARBONATE\CHOLECALCIFEROL [Suspect]
     Active Substance: CALCIUM CARBONATE\CHOLECALCIFEROL
     Dosage: UNK UNK, QD
  44. CALCIUM CARBONATE\CHOLECALCIFEROL [Suspect]
     Active Substance: CALCIUM CARBONATE\CHOLECALCIFEROL
     Dosage: 2 DF
  45. CALCIUM CARBONATE\CHOLECALCIFEROL [Suspect]
     Active Substance: CALCIUM CARBONATE\CHOLECALCIFEROL
     Dosage: UNK, QD
  46. CALCIUM CARBONATE\CHOLECALCIFEROL [Suspect]
     Active Substance: CALCIUM CARBONATE\CHOLECALCIFEROL
     Dosage: 1 DF, QD
  47. CALCIUM CARBONATE\CHOLECALCIFEROL [Suspect]
     Active Substance: CALCIUM CARBONATE\CHOLECALCIFEROL
     Dosage: 2 DF, QD
  48. CALCIUM CARBONATE\CHOLECALCIFEROL [Suspect]
     Active Substance: CALCIUM CARBONATE\CHOLECALCIFEROL
     Dosage: 1 DF, QD
  49. CALCIUM CARBONATE\CHOLECALCIFEROL [Suspect]
     Active Substance: CALCIUM CARBONATE\CHOLECALCIFEROL
     Dosage: UNK, QD
  50. CALCIUM CARBONATE\CHOLECALCIFEROL [Suspect]
     Active Substance: CALCIUM CARBONATE\CHOLECALCIFEROL
     Dosage: 1 DF
  51. CALCIUM CARBONATE\CHOLECALCIFEROL [Suspect]
     Active Substance: CALCIUM CARBONATE\CHOLECALCIFEROL
     Dosage: 2 DF, QD
  52. CALCIUM CARBONATE\CHOLECALCIFEROL [Suspect]
     Active Substance: CALCIUM CARBONATE\CHOLECALCIFEROL
     Dosage: 2 DF
     Route: 048
  53. DEXAMETHASONE [Suspect]
     Active Substance: DEXAMETHASONE
     Indication: Supportive care
     Dosage: 8 MG, QD
     Route: 048
     Dates: start: 20200825
  54. DEXAMETHASONE [Suspect]
     Active Substance: DEXAMETHASONE
     Dosage: 8 MG, QD
     Route: 048
     Dates: start: 20200825
  55. APREPITANT [Suspect]
     Active Substance: APREPITANT
     Indication: Supportive care
     Dosage: 125 MG (D1) SINGLE (D1 (125 MG)/125 MG, 1X; IN TOTAL) REGIMEN #1
     Dates: start: 20200826
  56. APREPITANT [Suspect]
     Active Substance: APREPITANT
     Indication: Mineral supplementation
     Dosage: 80 MG, (D2) SINGLE (IN TOTAL) REGIMEN #2
     Dates: start: 20200825
  57. APREPITANT [Suspect]
     Active Substance: APREPITANT
     Dosage: 125 MG D1 (125 MG); REGIMEN #3
     Dates: start: 20200825
  58. APREPITANT [Suspect]
     Active Substance: APREPITANT
     Dosage: 80 MG
     Dates: start: 20200826
  59. APREPITANT [Suspect]
     Active Substance: APREPITANT
     Dosage: UNK, QD
     Dates: start: 20200826
  60. APREPITANT [Suspect]
     Active Substance: APREPITANT
     Dosage: 125 MG, (D1 (125 MG)
     Dates: start: 20200826
  61. APREPITANT [Suspect]
     Active Substance: APREPITANT
     Dosage: 80 MG
     Dates: start: 20200825
  62. APREPITANT [Suspect]
     Active Substance: APREPITANT
     Dosage: 125 MG, 1X
     Dates: start: 20200826
  63. APREPITANT [Suspect]
     Active Substance: APREPITANT
     Dosage: 80 MG, (D2 (80MG), IN TOTAL)
     Dates: start: 20200826
  64. ONDANSETRON [Suspect]
     Active Substance: ONDANSETRON
     Indication: Laxative supportive care
     Dosage: (16 MG, 1 D)/16MG QD, ORODISPERSIBLE FILM
     Route: 048
     Dates: start: 20200825
  65. CISPLATIN [Suspect]
     Active Substance: CISPLATIN
     Indication: Germ cell neoplasm
     Dosage: 79 MG IN LITER
     Dates: start: 20200825
  66. PHENYLBUTAZONE [Suspect]
     Active Substance: PHENYLBUTAZONE
     Indication: Hypovitaminosis
     Dosage: 300 MG, QD
  67. PHENYLBUTAZONE [Suspect]
     Active Substance: PHENYLBUTAZONE
     Dosage: 300 MG, QD
  68. PHENYLBUTAZONE [Suspect]
     Active Substance: PHENYLBUTAZONE
     Dosage: 300 MG, QD
  69. PROPYPHENAZONE [Suspect]
     Active Substance: PROPYPHENAZONE
     Indication: Hypovitaminosis
     Dosage: 300 MG, QD
  70. PROPYPHENAZONE [Suspect]
     Active Substance: PROPYPHENAZONE
     Dosage: 300 MG, QD
  71. PROPYPHENAZONE [Suspect]
     Active Substance: PROPYPHENAZONE
     Dosage: 300 MG, QD
  72. CALCIUM\CHOLECALCIFEROL [Suspect]
     Active Substance: CALCIUM\CHOLECALCIFEROL
     Indication: Mineral supplementation
     Dosage: UNK, QD
  73. CALCIUM\CHOLECALCIFEROL [Suspect]
     Active Substance: CALCIUM\CHOLECALCIFEROL
     Dosage: 8 DF, QD
  74. CHOLECALCIFEROL [Suspect]
     Active Substance: CHOLECALCIFEROL
     Indication: Mineral supplementation
     Dosage: 8 DF, QD
  75. CHOLECALCIFEROL [Suspect]
     Active Substance: CHOLECALCIFEROL
     Indication: Mineral supplementation
     Dosage: UNK, QD
  76. CHOLECALCIFEROL [Suspect]
     Active Substance: CHOLECALCIFEROL
     Dosage: 1 DF, QD
  77. CHOLECALCIFEROL [Suspect]
     Active Substance: CHOLECALCIFEROL
     Dosage: 1 DF, QD
  78. CHOLECALCIFEROL [Suspect]
     Active Substance: CHOLECALCIFEROL
     Dosage: 1 DF, QD
  79. CHOLECALCIFEROL [Suspect]
     Active Substance: CHOLECALCIFEROL
     Dosage: 8 DF, QD
  80. CHOLECALCIFEROL [Suspect]
     Active Substance: CHOLECALCIFEROL
     Dosage: 1 DF
  81. CHOLECALCIFEROL [Suspect]
     Active Substance: CHOLECALCIFEROL
     Dosage: 2 DF, QD
  82. CHOLECALCIFEROL [Suspect]
     Active Substance: CHOLECALCIFEROL
     Dosage: 8 DF, QD
  83. CHOLECALCIFEROL [Suspect]
     Active Substance: CHOLECALCIFEROL
     Dosage: 8 DF, QD
  84. CHOLECALCIFEROL [Suspect]
     Active Substance: CHOLECALCIFEROL
     Dosage: 1 DF, QD
  85. THIAMINE HYDROCHLORIDE [Suspect]
     Active Substance: THIAMINE HYDROCHLORIDE
     Indication: Nutritional supplementation
     Dosage: 1 DF
  86. THIAMINE [Suspect]
     Active Substance: THIAMINE
     Indication: Hypovitaminosis
     Dosage: UNK
  87. THIAMINE [Suspect]
     Active Substance: THIAMINE
     Dosage: 300 MG, QD
  88. DOMPERIDONE MALEATE [Suspect]
     Active Substance: DOMPERIDONE MALEATE
     Indication: Supportive care
     Dosage: 30MG,QD,30MG,QD (PRN (30 MG,1 D))
     Route: 048
     Dates: start: 20200825
  89. DOMPERIDONE MALEATE [Suspect]
     Active Substance: DOMPERIDONE MALEATE
     Dosage: 8 MG, QD; ORAL
  90. DOMPERIDONE MALEATE [Suspect]
     Active Substance: DOMPERIDONE MALEATE
     Dosage: UNKNOWN

REACTIONS (9)
  - Hypersensitivity [Recovered/Resolved]
  - Abdominal distension [Unknown]
  - Barrett^s oesophagus [Unknown]
  - Vitamin B12 deficiency [Unknown]
  - Regurgitation [Unknown]
  - Dyspepsia [Unknown]
  - Neck pain [Unknown]
  - Oropharyngeal discomfort [Unknown]
  - Eructation [Unknown]

NARRATIVE: CASE EVENT DATE: 20200825
